FAERS Safety Report 5104570-X (Version None)
Quarter: 2006Q3

REPORT INFORMATION
  Report Type: 
  Country: None (occurrence: None)
  Receive Date: 20060908
  Receipt Date: 20060908
  Transmission Date: 20061208
  Serious: Yes (Hospitalization)
  Sender: FDA-Public Use
  Company Number: None

PATIENT
  Age: 66 Year
  Sex: Male
  Weight: 62.5964 kg

DRUGS (14)
  1. DOCETAXEL 80 MG /2 ML [Suspect]
     Indication: PROSTATE CANCER
     Dosage: 60 MG CYCLE IV
     Route: 042
     Dates: start: 20060706, end: 20060907
  2. DESIPRAMINE HCL [Concomitant]
  3. SENOKOT [Concomitant]
  4. FELODIPINE [Concomitant]
  5. FUROSEMIDE [Concomitant]
  6. TEMAZEPAM [Concomitant]
  7. OXYCODONE HCL [Concomitant]
  8. FENTANYL [Concomitant]
  9. FERROUS SULFATE TAB [Concomitant]
  10. MORPHINE [Concomitant]
  11. HALOPERIODOL [Concomitant]
  12. OMEPRAZOLE [Concomitant]
  13. OXYBUTYNIN [Concomitant]
  14. DARBEPOETIN ALFA [Concomitant]

REACTIONS (1)
  - ANAEMIA [None]
